FAERS Safety Report 4574742-1 (Version None)
Quarter: 2005Q1

REPORT INFORMATION
  Report Type: 
  Country: None (occurrence: None)
  Receive Date: 20050204
  Receipt Date: 20050129
  Transmission Date: 20050727
  Serious: No
  Sender: FDA-Public Use
  Company Number: TPA2005A00120

PATIENT
  Sex: Female

DRUGS (1)
  1. ACTOS [Suspect]
     Dosage: 75 MG, 1 IN 1 D, PER ORAL
     Route: 048

REACTIONS (1)
  - ADVERSE EVENT [None]
